FAERS Safety Report 23675258 (Version 6)
Quarter: 2024Q3

REPORT INFORMATION
  Report Type: Report from Study
  Country: US (occurrence: US)
  Receive Date: 20240327
  Receipt Date: 20240812
  Transmission Date: 20241017
  Serious: Yes (Hospitalization, Other)
  Sender: SANOFI AVENTIS
  Company Number: US-SA-SAC20230823001013

PATIENT
  Age: 34 Year
  Sex: Male

DRUGS (16)
  1. EFTRENONACOG ALFA [Suspect]
     Active Substance: EFTRENONACOG ALFA
     Indication: Factor IX deficiency
     Dosage: 10500 IU (+/-10%), , QW
     Route: 042
     Dates: start: 20150204
  2. EFTRENONACOG ALFA [Suspect]
     Active Substance: EFTRENONACOG ALFA
     Indication: Factor IX deficiency
     Dosage: 10500 IU (+/-10%), , QW
     Route: 042
     Dates: start: 20150204
  3. EFTRENONACOG ALFA [Suspect]
     Active Substance: EFTRENONACOG ALFA
     Dosage: 5500 U
     Route: 042
  4. EFTRENONACOG ALFA [Suspect]
     Active Substance: EFTRENONACOG ALFA
     Dosage: 5500 U
     Route: 042
  5. EFTRENONACOG ALFA [Suspect]
     Active Substance: EFTRENONACOG ALFA
     Dosage: 10500 U, QW
     Route: 042
  6. EFTRENONACOG ALFA [Suspect]
     Active Substance: EFTRENONACOG ALFA
     Dosage: 10500 U, QW
     Route: 042
  7. EFTRENONACOG ALFA [Suspect]
     Active Substance: EFTRENONACOG ALFA
     Dosage: 2500 IU, QW
     Route: 042
  8. EFTRENONACOG ALFA [Suspect]
     Active Substance: EFTRENONACOG ALFA
     Dosage: 2500 IU, QW
     Route: 042
  9. EFTRENONACOG ALFA [Suspect]
     Active Substance: EFTRENONACOG ALFA
     Dosage: 2500 IU, PRN
     Route: 042
  10. EFTRENONACOG ALFA [Suspect]
     Active Substance: EFTRENONACOG ALFA
     Dosage: 2500 IU, PRN
     Route: 042
  11. EFTRENONACOG ALFA [Suspect]
     Active Substance: EFTRENONACOG ALFA
     Dosage: 3000 U, PRN
     Route: 042
  12. EFTRENONACOG ALFA [Suspect]
     Active Substance: EFTRENONACOG ALFA
     Dosage: 3000 U, PRN
     Route: 042
  13. EFTRENONACOG ALFA [Suspect]
     Active Substance: EFTRENONACOG ALFA
     Dosage: 8000 U, QW
     Route: 042
  14. EFTRENONACOG ALFA [Suspect]
     Active Substance: EFTRENONACOG ALFA
     Dosage: 8000 U, QW
     Route: 042
  15. EFTRENONACOG ALFA [Suspect]
     Active Substance: EFTRENONACOG ALFA
     Dosage: 10500 U, QW
     Route: 042
  16. EFTRENONACOG ALFA [Suspect]
     Active Substance: EFTRENONACOG ALFA
     Dosage: 10500 U, QW
     Route: 042

REACTIONS (11)
  - Abdominal pain upper [Unknown]
  - Knee operation [Recovering/Resolving]
  - Haemarthrosis [Recovering/Resolving]
  - Product dose omission issue [Recovering/Resolving]
  - Haemarthrosis [Recovered/Resolved]
  - Haemorrhage [Unknown]
  - Spontaneous haemorrhage [Recovered/Resolved]
  - Arthropathy [Unknown]
  - Post procedural haemorrhage [Unknown]
  - Haemorrhage [Recovered/Resolved]
  - Haemorrhage [Recovered/Resolved]

NARRATIVE: CASE EVENT DATE: 20230101
